FAERS Safety Report 4604761-8 (Version None)
Quarter: 2005Q1

REPORT INFORMATION
  Report Type: 
  Country: None (occurrence: None)
  Receive Date: 20050224
  Receipt Date: 20041206
  Transmission Date: 20050727
  Serious: No
  Sender: FDA-Public Use
  Company Number: SU-2004-002897

PATIENT
  Age: 51 Year
  Sex: Female

DRUGS (15)
  1. BENICAR [Suspect]
     Indication: HYPERTENSION
     Dosage: 20 MG QD PO
     Route: 048
  2. ZYRTEC [Concomitant]
  3. PREMARIN [Concomitant]
  4. CELEBREX [Concomitant]
  5. AVANDIA [Concomitant]
  6. SYNTHROID [Concomitant]
  7. CELEXA [Concomitant]
  8. TORSEMIDE [Concomitant]
  9. TRICOR [Concomitant]
  10. LIPITOR [Concomitant]
  11. NPH INSULIN [Concomitant]
  12. HUMALOG [Concomitant]
  13. PERCOCET [Concomitant]
  14. SKELAXIN [Concomitant]
  15. KLOR-CON [Concomitant]

REACTIONS (1)
  - NAUSEA [None]
